FAERS Safety Report 6887246-8 (Version None)
Quarter: 2010Q3

REPORT INFORMATION
  Report Type: 
  Country: None (occurrence: None)
  Receive Date: 20100730
  Receipt Date: 20100409
  Transmission Date: 20110219
  Serious: No
  Sender: FDA-Public Use
  Company Number: A0854523A

PATIENT
  Age: 4 Year
  Sex: Male

DRUGS (4)
  1. FLOVENT [Suspect]
     Indication: ASTHMA
     Dosage: 1PUFF TWICE PER DAY
     Route: 055
     Dates: start: 20100406
  2. ALBUTEROL SULATE [Concomitant]
  3. CLARITIN [Concomitant]
  4. VITAMINS [Concomitant]

REACTIONS (1)
  - RASH [None]
